FAERS Safety Report 9825103 (Version 1)
Quarter: 2014Q1

REPORT INFORMATION
  Report Type: Report from Study
  Country: US (occurrence: US)
  Receive Date: 20140117
  Receipt Date: 20140117
  Transmission Date: 20141002
  Serious: Yes (Death)
  Sender: FDA-Public Use
  Company Number: US-ROCHE-1333956

PATIENT
  Age: 62 Year
  Sex: Male
  Weight: 73.28 kg

DRUGS (23)
  1. AVASTIN [Suspect]
     Indication: COLON CANCER
     Dosage: LAST DOSE OF AVASTIN WAS ON 04/APR/2013
     Route: 065
     Dates: start: 20121119, end: 20130404
  2. IBUPROFEN [Concomitant]
     Route: 048
  3. OXALIPLATIN [Concomitant]
     Dosage: IVPB OVER 2 HOURS
     Route: 042
     Dates: start: 20121119
  4. FLUOROURACIL [Concomitant]
     Dosage: CIV OVER 46 HOURS
     Route: 042
     Dates: start: 20121119
  5. ALOXI [Concomitant]
     Route: 040
  6. 5-FU [Concomitant]
     Dosage: IVP OVER 2-4 MINUTES
     Route: 040
  7. DEXAMETHASONE [Concomitant]
     Dosage: AS DIRECTED IVP
     Route: 040
  8. LEUCOVORIN [Concomitant]
     Dosage: IVPB OVER 2 HOURS
     Route: 042
  9. VITRON-C [Concomitant]
     Dosage: 2-3 TAB DAILY
     Route: 065
  10. CALCIUM GLUCONATE [Concomitant]
     Dosage: 15MIN PRE/POST OXALIPLATIN TO PREVENT NEUROTOXICITY
     Route: 065
  11. MAGNESIUM SULFATE [Concomitant]
     Dosage: 15MIN PRE/POST OXALIPLATIN TO PREVENT NEUROTOXICITY
     Route: 042
  12. AMBIEN [Concomitant]
     Route: 065
  13. PRILOCAINE [Concomitant]
     Dosage: AS DIRECTED
     Route: 061
  14. LIDOCAINE [Concomitant]
     Dosage: ADHESIVE PATCH?1 PATCH;APPLY IN MORNING/REMOVE 12 HOURS LATER
     Route: 061
  15. LORATADINE [Concomitant]
     Route: 048
  16. LORAZEPAM [Concomitant]
     Route: 048
  17. OMEGA 3 ACID ETHYL ESTERS [Concomitant]
     Route: 048
  18. LYRICA [Concomitant]
     Dosage: AS REQUIRED
     Route: 048
  19. PROCHLORPERAZINE MALEATE [Concomitant]
     Route: 048
  20. MORPHINE SULFATE [Concomitant]
     Dosage: FORM STRENGTH: 100 MG/5 ML
     Route: 048
  21. TYLENOL [Concomitant]
     Route: 048
  22. VALIUM [Concomitant]
     Dosage: AS REQUIRED.
     Route: 048
  23. FOLINIC ACID [Concomitant]

REACTIONS (5)
  - Colon cancer [Fatal]
  - Abdominal pain lower [Unknown]
  - Fatigue [Unknown]
  - Pain [Unknown]
  - Ocular icterus [Unknown]
